FAERS Safety Report 4839196-6 (Version None)
Quarter: 2005Q4

REPORT INFORMATION
  Report Type: 
  Country: None (occurrence: None)
  Receive Date: 20051129
  Receipt Date: 20051118
  Transmission Date: 20060501
  Serious: Yes (Hospitalization)
  Sender: FDA-Public Use
  Company Number: US-JNJFOC-20050705368

PATIENT
  Sex: Male
  Weight: 66.23 kg

DRUGS (5)
  1. REMICADE [Suspect]
     Dosage: 4 VIALS
  2. REMICADE [Suspect]
     Indication: CROHN'S DISEASE
  3. IMURAN [Concomitant]
  4. STEROIDS [Concomitant]
  5. 5-ASA [Concomitant]

REACTIONS (2)
  - FUNGAL SEPSIS [None]
  - SEPTIC EMBOLUS [None]
